FAERS Safety Report 7552564-7 (Version None)
Quarter: 2011Q2

REPORT INFORMATION
  Report Type: 
  Country: None (occurrence: None)
  Receive Date: 20110609
  Receipt Date: 20110531
  Transmission Date: 20111010
  Serious: Yes (Hospitalization, Other)
  Sender: FDA-Public Use
  Company Number: 2011PL000075

PATIENT
  Sex: Female

DRUGS (12)
  1. DARBEPOETIN ALFA (DARBOPOETIN ALFA) [Suspect]
     Indication: RENAL FAILURE CHRONIC
     Dosage: 40 UNK, UNK,  SC,
     Route: 058
     Dates: start: 20100914, end: 20101207
  2. CELLCEPT [Concomitant]
  3. PRESERVISION LUTEIN EYE VITAMIN.SUP.SOFTG. [Concomitant]
  4. BERIVINE [Concomitant]
  5. PERINDOPRIL ERBUMINE [Concomitant]
  6. LIPITOR [Concomitant]
  7. ROCALTROL [Concomitant]
  8. NEORAL [Suspect]
     Indication: HEART TRANSPLANT
     Dosage: 140 MG, PO
     Route: 048
     Dates: start: 20020101
  9. BISOPROLOL [Concomitant]
  10. CARDIOASPIRINE [Concomitant]
  11. ALLOPURINOL [Suspect]
     Indication: PRODUCT USED FOR UNKNOWN INDICATION
     Dosage: 100 MG
  12. VITA. +MIN. SUP. SOFTG. [Concomitant]

REACTIONS (2)
  - HAEMOGLOBINOPATHY [None]
  - MYELOFIBROSIS [None]
